FAERS Safety Report 15470569 (Version 3)
Quarter: 2020Q1

REPORT INFORMATION
  Report Type: Report from Study
  Country: KR (occurrence: KR)
  Receive Date: 20181005
  Receipt Date: 20200131
  Transmission Date: 20200409
  Serious: Yes (Death, Hospitalization, Other)
  Sender: FDA-Public Use
  Company Number: KR-BRISTOL-MYERS SQUIBB COMPANY-BMS-2018-089901

PATIENT
  Age: 63 Year
  Sex: Male
  Weight: 41.5 kg

DRUGS (8)
  1. SPATAM [Concomitant]
     Indication: PRODUCT USED FOR UNKNOWN INDICATION
     Dosage: 10 PERCENT 2 AMPLE
     Route: 065
     Dates: start: 20180920, end: 20180923
  2. VENTOLIN NEBULAS [Concomitant]
     Active Substance: ALBUTEROL SULFATE
     Indication: PRODUCT USED FOR UNKNOWN INDICATION
     Dosage: 2.5 MILLIGRAM, 4 AMPLE
     Route: 065
     Dates: start: 20180920, end: 20180923
  3. ATROVENT UDV [Concomitant]
     Active Substance: IPRATROPIUM BROMIDE
     Indication: PRODUCT USED FOR UNKNOWN INDICATION
     Dosage: 500 MCG/2ML, 1 BOTTLE
     Route: 065
     Dates: start: 20180920, end: 20180923
  4. MUCOMYST [Concomitant]
     Active Substance: ACETYLCYSTEINE
     Indication: PRODUCT USED FOR UNKNOWN INDICATION
     Dosage: 1 VIAL
     Route: 065
     Dates: start: 20180920, end: 20180923
  5. NIVOLUMAB [Suspect]
     Active Substance: NIVOLUMAB
     Indication: NON-SMALL CELL LUNG CANCER
     Dosage: 3 MILLIGRAM/KILOGRAM, Q2WK
     Route: 041
     Dates: start: 20180817, end: 20180917
  6. CRAVIT [Concomitant]
     Active Substance: LEVOFLOXACIN
     Indication: PRODUCT USED FOR UNKNOWN INDICATION
     Dosage: 750 MG/150ML, 1 BOTTLE
     Route: 065
     Dates: start: 20180920, end: 20180923
  7. SALON [Concomitant]
     Indication: PRODUCT USED FOR UNKNOWN INDICATION
     Dosage: 500 MILLIGRAM, 2 VIAL
     Route: 065
     Dates: start: 20180920, end: 20180923
  8. TABAXIN [Concomitant]
     Active Substance: PIPERACILLIN SODIUM\TAZOBACTAM SODIUM
     Indication: PRODUCT USED FOR UNKNOWN INDICATION
     Dosage: 4.5 GRAM, 3 VIAL
     Route: 065
     Dates: start: 20180920, end: 20180923

REACTIONS (1)
  - Pneumonia [Fatal]

NARRATIVE: CASE EVENT DATE: 20180920
